FAERS Safety Report 5749625-1 (Version None)
Quarter: 2008Q2

REPORT INFORMATION
  Report Type: 
  Country: None (occurrence: None)
  Receive Date: 20080527
  Receipt Date: 20080514
  Transmission Date: 20081010
  Serious: Yes (Other)
  Sender: FDA-Public Use
  Company Number: US-MERCK-0805USA04551

PATIENT
  Age: 43 Year
  Sex: Male
  Weight: 128 kg

DRUGS (7)
  1. VYTORIN [Suspect]
     Indication: DYSLIPIDAEMIA
     Route: 048
  2. VYTORIN [Suspect]
     Route: 048
     Dates: start: 20051015
  3. COREG [Concomitant]
     Route: 065
  4. ALTACE [Concomitant]
     Route: 065
  5. PLAVIX [Concomitant]
     Route: 065
  6. ASPIRIN [Concomitant]
     Route: 065
  7. INSPRA [Concomitant]
     Route: 065

REACTIONS (2)
  - ARTHRALGIA [None]
  - MYOCARDIAL INFARCTION [None]
